FAERS Safety Report 16156627 (Version 1)
Quarter: 2019Q2

REPORT INFORMATION
  Report Type: Spontaneous
  Country: US (occurrence: US)
  Receive Date: 20190228
  Receipt Date: 20190228
  Transmission Date: 20190711
  Serious: Yes (Life-Threatening, Hospitalization)
  Sender: FDA-Public Use
  Company Number: None

PATIENT
  Age: 60 Year
  Sex: Male

DRUGS (1)
  1. IRINOTECAN [Suspect]
     Active Substance: IRINOTECAN
     Route: 042
     Dates: start: 20190123, end: 20190123

REACTIONS (8)
  - Dyspnoea [None]
  - Hyperhidrosis [None]
  - Wheezing [None]
  - Erythema [None]
  - Pruritus [None]
  - Feeling hot [None]
  - Cough [None]
  - Dizziness [None]

NARRATIVE: CASE EVENT DATE: 20190123
